FAERS Safety Report 4522143-4 (Version None)
Quarter: 2004Q4

REPORT INFORMATION
  Report Type: 
  Country: None (occurrence: None)
  Receive Date: 20041209
  Receipt Date: 20041021
  Transmission Date: 20050328
  Serious: Yes (Life-Threatening)
  Sender: FDA-Public Use
  Company Number: JP-ROCHE-383843

PATIENT
  Age: 86 Year
  Sex: Male

DRUGS (4)
  1. PANALDINE [Suspect]
     Indication: CEREBRAL INFARCTION
     Route: 048
     Dates: start: 20030801, end: 20041006
  2. DIGOXIN [Suspect]
     Indication: DRUG USE FOR UNKNOWN INDICATION
     Route: 065
  3. KETAS [Concomitant]
     Route: 048
     Dates: start: 20030801, end: 20041006
  4. HARNAL [Concomitant]
     Dosage: REPORTED AS TAMSULOSIN HYDROCHLORIDE
     Route: 048
     Dates: start: 20040830

REACTIONS (9)
  - ANAEMIA [None]
  - BODY TEMPERATURE INCREASED [None]
  - CHEST PAIN [None]
  - DELIRIUM [None]
  - DISSEMINATED INTRAVASCULAR COAGULATION [None]
  - HAEMORRHAGE SUBCUTANEOUS [None]
  - PURPURA [None]
  - RENAL IMPAIRMENT [None]
  - THROMBOCYTOPENIA [None]
